FAERS Safety Report 12528971 (Version 1)
Quarter: 2016Q3

REPORT INFORMATION
  Report Type: Spontaneous
  Country: US (occurrence: US)
  Receive Date: 20160705
  Receipt Date: 20160705
  Transmission Date: 20161109
  Serious: Yes (Hospitalization)
  Sender: FDA-Public Use
  Company Number: US-ACTELION-A-NJ2016-138384

PATIENT
  Age: 57 Year
  Sex: Male

DRUGS (9)
  1. OPSUMIT [Suspect]
     Active Substance: MACITENTAN
     Indication: PULMONARY ARTERIAL HYPERTENSION
     Dosage: 10 MG, UNK
     Route: 048
     Dates: start: 20160201
  2. CODEINE W/GUAIFENESIN [Concomitant]
  3. FAMOTIDINE. [Concomitant]
     Active Substance: FAMOTIDINE
     Dosage: UNK
     Dates: start: 20160214
  4. OXYGEN. [Concomitant]
     Active Substance: OXYGEN
     Dosage: 5 L/MIN, UNK
  5. ALBUTEROL SULFATE. [Concomitant]
     Active Substance: ALBUTEROL SULFATE
     Dosage: UNK
     Dates: start: 20160214
  6. ESBRIET [Concomitant]
     Active Substance: PIRFENIDONE
     Dosage: UNK
     Dates: start: 20160214
  7. OMEPRAZOLE. [Concomitant]
     Active Substance: OMEPRAZOLE
  8. ACETYLCYSTEINE. [Concomitant]
     Active Substance: ACETYLCYSTEINE
     Dosage: UNK
     Dates: start: 20160214
  9. CHERATUSSIN AC [Concomitant]
     Active Substance: CODEINE PHOSPHATE\GUAIFENESIN
     Dosage: UNK
     Dates: start: 20160214

REACTIONS (2)
  - Lung transplant [Recovered/Resolved]
  - Pulmonary arterial hypertension [Recovered/Resolved]

NARRATIVE: CASE EVENT DATE: 20160610
